FAERS Safety Report 16844671 (Version 1)
Quarter: 2019Q3

REPORT INFORMATION
  Report Type: Report from Study
  Country: US (occurrence: US)
  Receive Date: 20190924
  Receipt Date: 20190924
  Transmission Date: 20191005
  Serious: Yes (Other)
  Sender: FDA-Public Use
  Company Number: MX-KYOWAKIRIN-2017CKK000369

PATIENT

DRUGS (12)
  1. MULTIVITAMIN                       /00097801/ [Concomitant]
     Active Substance: VITAMINS
     Indication: PROPHYLAXIS
     Dosage: 1 DOSE
     Route: 048
     Dates: start: 20160913
  2. TRAMADOL. [Concomitant]
     Active Substance: TRAMADOL
     Indication: TUMOUR PAIN
     Dosage: 50 MG, PRN
     Route: 048
     Dates: start: 20160601
  3. CLINDAMYCIN. [Concomitant]
     Active Substance: CLINDAMYCIN
     Indication: DERMATITIS ACNEIFORM
     Dosage: 1 %, UNK
     Route: 061
     Dates: start: 20161231
  4. MOGAMULIZUMAB [Suspect]
     Active Substance: MOGAMULIZUMAB
     Dosage: 1 MG/KG, 1X/WEEK
     Route: 042
     Dates: start: 20161219, end: 20170110
  5. HYDROCORTISONE. [Concomitant]
     Active Substance: HYDROCORTISONE
     Indication: DERMATITIS ACNEIFORM
  6. HYDROCORTISONE. [Concomitant]
     Active Substance: HYDROCORTISONE
     Indication: RASH MACULO-PAPULAR
     Dosage: 1 APPLICATION, PRN
     Route: 061
     Dates: start: 20160913
  7. KHK2455 [Suspect]
     Active Substance: INVESTIGATIONAL PRODUCT
     Dosage: 0.3 MG, QD
     Route: 048
     Dates: start: 20161121, end: 20170117
  8. MOGAMULIZUMAB [Suspect]
     Active Substance: MOGAMULIZUMAB
     Indication: HEAD AND NECK CANCER METASTATIC
     Dosage: 1 MG/KG, 1X/2 WEEKS
     Route: 042
     Dates: start: 20170307, end: 20170321
  9. MOGAMULIZUMAB [Suspect]
     Active Substance: MOGAMULIZUMAB
     Dosage: 1 MG/KG, 1X/2 WEEKS
     Route: 042
     Dates: start: 20170117, end: 20170117
  10. ENOXAPARIN [Concomitant]
     Active Substance: ENOXAPARIN
     Indication: EMBOLISM
     Dosage: 200 MG, UNK
     Route: 048
     Dates: start: 20160601
  11. KHK2455 [Suspect]
     Active Substance: INVESTIGATIONAL PRODUCT
     Indication: HEAD AND NECK CANCER METASTATIC
     Dosage: 0.3 MG, QD
     Route: 048
     Dates: start: 20170221, end: 20170315
  12. LEVOTHYROXINE. [Concomitant]
     Active Substance: LEVOTHYROXINE
     Indication: HYPOTHYROIDISM
     Dosage: 50 UG, UNK
     Route: 048
     Dates: start: 20161104

REACTIONS (2)
  - Drug eruption [Recovered/Resolved]
  - Oral candidiasis [Recovered/Resolved]

NARRATIVE: CASE EVENT DATE: 20170201
